FAERS Safety Report 8304391-0 (Version None)
Quarter: 2012Q2

REPORT INFORMATION
  Report Type: 
  Country: None (occurrence: None)
  Receive Date: 20120423
  Receipt Date: 20120411
  Transmission Date: 20120825
  Serious: Yes (Hospitalization)
  Sender: FDA-Public Use
  Company Number: US-SANOFI-AVENTIS-2012SA025201

PATIENT
  Age: 47 Year
  Sex: Female

DRUGS (1)
  1. LOVENOX [Suspect]
     Indication: THROMBOSIS PROPHYLAXIS
     Dates: start: 20120326, end: 20120330

REACTIONS (6)
  - CHEST PAIN [None]
  - INJECTION SITE PAIN [None]
  - HEART RATE ABNORMAL [None]
  - BLOOD PRESSURE INCREASED [None]
  - INJECTION SITE MASS [None]
  - INJECTION SITE HAEMATOMA [None]
